FAERS Safety Report 22088608 (Version 1)
Quarter: 2023Q1

REPORT INFORMATION
  Report Type: Spontaneous
  Country: CA (occurrence: CA)
  Receive Date: 20230313
  Receipt Date: 20230313
  Transmission Date: 20230418
  Serious: Yes (Other)
  Sender: FDA-Public Use
  Company Number: CA-002147023-NVSC2023CA052233

PATIENT
  Age: 33 Year
  Sex: Female

DRUGS (27)
  1. DEXAMETHASONE [Suspect]
     Active Substance: DEXAMETHASONE
     Indication: Epstein-Barr virus infection
     Dosage: 40 MG, QD
     Route: 042
  2. DEXAMETHASONE [Suspect]
     Active Substance: DEXAMETHASONE
     Indication: Chemotherapy
     Dosage: UNK
     Route: 065
  3. DEXAMETHASONE [Suspect]
     Active Substance: DEXAMETHASONE
     Indication: Angiocentric lymphoma
     Dosage: UNK
     Route: 065
  4. ETOPOSIDE [Suspect]
     Active Substance: ETOPOSIDE
     Indication: Epstein-Barr virus infection
     Dosage: UNK
     Route: 065
  5. ETOPOSIDE [Suspect]
     Active Substance: ETOPOSIDE
     Indication: Chemotherapy
     Dosage: UNK
     Route: 042
  6. ETOPOSIDE [Suspect]
     Active Substance: ETOPOSIDE
     Indication: Angiocentric lymphoma
     Dosage: UNK
     Route: 065
  7. GRANULOCYTE COLONY-STIMULATING FACTOR NOS [Suspect]
     Active Substance: GRANULOCYTE COLONY-STIMULATING FACTOR NOS
     Indication: Epstein-Barr virus infection
     Dosage: UNK
     Route: 048
  8. GRANULOCYTE COLONY-STIMULATING FACTOR NOS [Suspect]
     Active Substance: GRANULOCYTE COLONY-STIMULATING FACTOR NOS
     Indication: Chemotherapy
     Dosage: UNK
     Route: 065
  9. GRANULOCYTE COLONY-STIMULATING FACTOR NOS [Suspect]
     Active Substance: GRANULOCYTE COLONY-STIMULATING FACTOR NOS
     Indication: Angiocentric lymphoma
  10. IFEX [Suspect]
     Active Substance: IFOSFAMIDE
     Indication: Epstein-Barr virus infection
     Dosage: UNK
     Route: 042
  11. IFEX [Suspect]
     Active Substance: IFOSFAMIDE
     Indication: Chemotherapy
     Dosage: UNK
     Route: 065
  12. IFEX [Suspect]
     Active Substance: IFOSFAMIDE
     Indication: Angiocentric lymphoma
     Dosage: UNK
     Route: 065
  13. ASPARAGINASE [Suspect]
     Active Substance: ASPARAGINASE
     Indication: Epstein-Barr virus infection
     Dosage: UNK
     Route: 065
  14. ASPARAGINASE [Suspect]
     Active Substance: ASPARAGINASE
     Indication: Chemotherapy
     Dosage: UNK
     Route: 065
  15. ASPARAGINASE [Suspect]
     Active Substance: ASPARAGINASE
     Indication: Angiocentric lymphoma
     Dosage: UNK
     Route: 030
  16. LEUCOVORIN [Suspect]
     Active Substance: LEUCOVORIN
     Indication: Epstein-Barr virus infection
     Dosage: UNK
     Route: 065
  17. LEUCOVORIN [Suspect]
     Active Substance: LEUCOVORIN
     Indication: Chemotherapy
     Dosage: 15 MG, QID
     Route: 042
  18. LEUCOVORIN [Suspect]
     Active Substance: LEUCOVORIN
     Indication: Angiocentric lymphoma
     Dosage: UNK
     Route: 065
  19. METHOTREXATE SODIUM [Suspect]
     Active Substance: METHOTREXATE SODIUM
     Indication: Epstein-Barr virus infection
     Dosage: UNK
     Route: 065
  20. METHOTREXATE SODIUM [Suspect]
     Active Substance: METHOTREXATE SODIUM
     Indication: Chemotherapy
     Dosage: UNK
     Route: 048
  21. METHOTREXATE SODIUM [Suspect]
     Active Substance: METHOTREXATE SODIUM
     Indication: Angiocentric lymphoma
     Dosage: UNK
     Route: 065
  22. MESNA [Suspect]
     Active Substance: MESNA
     Indication: Epstein-Barr virus infection
     Dosage: UNK
     Route: 065
  23. MESNA [Suspect]
     Active Substance: MESNA
     Indication: Chemotherapy
     Dosage: 1 DOSAGE FORM, QD
     Route: 042
  24. MESNA [Suspect]
     Active Substance: MESNA
     Indication: Angiocentric lymphoma
  25. BRENTUXIMAB VEDOTIN [Concomitant]
     Active Substance: BRENTUXIMAB VEDOTIN
     Indication: Epstein-Barr virus infection
     Dosage: 1.8 MG/KG
     Route: 048
  26. BRENTUXIMAB VEDOTIN [Concomitant]
     Active Substance: BRENTUXIMAB VEDOTIN
     Indication: Chemotherapy
  27. BRENTUXIMAB VEDOTIN [Concomitant]
     Active Substance: BRENTUXIMAB VEDOTIN
     Indication: Angiocentric lymphoma

REACTIONS (2)
  - Thrombocytopenia [Unknown]
  - Neutropenia [Unknown]
